FAERS Safety Report 14729815 (Version 1)
Quarter: 2018Q2

REPORT INFORMATION
  Report Type: Spontaneous
  Country: US (occurrence: US)
  Receive Date: 20180402
  Receipt Date: 20180402
  Transmission Date: 20180711
  Serious: Yes (Hospitalization, Other)
  Sender: FDA-Public Use
  Company Number: None

PATIENT
  Age: 75 Year
  Sex: Female

DRUGS (28)
  1. GABAPENTIN. [Concomitant]
     Active Substance: GABAPENTIN
  2. CELEXA [Concomitant]
     Active Substance: CITALOPRAM HYDROBROMIDE
  3. VOTRIENT [Suspect]
     Active Substance: PAZOPANIB HYDROCHLORIDE
     Indication: RENAL CANCER
     Route: 048
     Dates: start: 20111111
  4. MORPHINE SUL [Concomitant]
     Active Substance: MORPHINE SULFATE
  5. PROTONIX [Concomitant]
     Active Substance: PANTOPRAZOLE SODIUM
  6. HYDROCHLOROT [Concomitant]
     Active Substance: HYDROCHLOROTHIAZIDE
  7. NEXIUM [Concomitant]
     Active Substance: ESOMEPRAZOLE MAGNESIUM
  8. APIDRA [Concomitant]
     Active Substance: INSULIN GLULISINE
  9. LOPERAMIDE [Concomitant]
     Active Substance: LOPERAMIDE
  10. METOCLOPRAM [Concomitant]
     Active Substance: METOCLOPRAMIDE
  11. LOSARTAN POT [Concomitant]
     Active Substance: LOSARTAN POTASSIUM
  12. LAMICTAL [Concomitant]
     Active Substance: LAMOTRIGINE
  13. RISPERDAL [Concomitant]
     Active Substance: RISPERIDONE
  14. LMD POW [Concomitant]
  15. TYLENOL [Concomitant]
     Active Substance: ACETAMINOPHEN
  16. LANTUS [Concomitant]
     Active Substance: INSULIN GLARGINE
  17. BUSPIRONE [Concomitant]
     Active Substance: BUSPIRONE HYDROCHLORIDE
  18. CUBICIN [Concomitant]
     Active Substance: DAPTOMYCIN
  19. CYMBALTA [Concomitant]
     Active Substance: DULOXETINE HYDROCHLORIDE
  20. LOMOTIL [Concomitant]
     Active Substance: ATROPINE SULFATE\DIPHENOXYLATE HYDROCHLORIDE
  21. FLUOXETINE [Concomitant]
     Active Substance: FLUOXETINE HYDROCHLORIDE
  22. TUMS [Concomitant]
     Active Substance: CALCIUM CARBONATE
  23. EPHEDRA [Concomitant]
     Active Substance: EPHEDRA
  24. OXYCODONE [Concomitant]
     Active Substance: OXYCODONE
  25. REGLAN [Concomitant]
     Active Substance: METOCLOPRAMIDE HYDROCHLORIDE
  26. FUROSEMIDE. [Concomitant]
     Active Substance: FUROSEMIDE
  27. HYDROCO / APAP [Concomitant]
  28. PHENERGAN [Concomitant]
     Active Substance: PROMETHAZINE HYDROCHLORIDE

REACTIONS (2)
  - Aspiration pleural cavity [None]
  - Biopsy [None]

NARRATIVE: CASE EVENT DATE: 20180201
